APPROVED DRUG PRODUCT: DOXYCYCLINE
Active Ingredient: DOXYCYCLINE
Strength: 40MG
Dosage Form/Route: CAPSULE;ORAL
Application: A210381 | Product #001 | TE Code: AB
Applicant: MACLEODS PHARMACEUTICALS LTD
Approved: Mar 27, 2025 | RLD: No | RS: No | Type: RX